FAERS Safety Report 26130143 (Version 2)
Quarter: 2025Q4

REPORT INFORMATION
  Report Type: Spontaneous
  Country: EU (occurrence: EU)
  Receive Date: 20251208
  Receipt Date: 20251217
  Transmission Date: 20260117
  Serious: Yes (Life-Threatening, Hospitalization)
  Sender: ROCHE
  Company Number: None

PATIENT
  Age: 93 Year
  Sex: Female
  Weight: 40 kg

DRUGS (3)
  1. METALYSE [Suspect]
     Active Substance: TENECTEPLASE
     Indication: Ischaemic stroke
     Dosage: THE DOSAGE ADMINISTERED IS UNKNOWN (0.25 MG/KG BODY WEIGHT DOSED ONCE TOTAL)
     Route: 042
  2. DAK [Concomitant]
     Indication: Pain
     Dosage: 12.5 MG AS NECESSARY, MAXIMUM 2 TIMES DAILY?STRENGTH 24 MG
  3. METOPROLOL SUCCINATE [Concomitant]
     Active Substance: METOPROLOL SUCCINATE
     Indication: Heart rate irregular
     Dosage: STRENGTH: 50 MG
     Dates: start: 201811

REACTIONS (2)
  - Cerebral haemorrhage [Recovering/Resolving]
  - Anisocoria [Recovering/Resolving]

NARRATIVE: CASE EVENT DATE: 20251123
